FAERS Safety Report 19511748 (Version 1)
Quarter: 2021Q3

REPORT INFORMATION
  Report Type: Other
  Country: GB (occurrence: GB)
  Receive Date: 20210709
  Receipt Date: 20210709
  Transmission Date: 20211014
  Serious: Yes (Other)
  Sender: FDA-Public Use
  Company Number: GB-STRIDES ARCOLAB LIMITED-2021SP007465

PATIENT
  Age: 83 Year
  Sex: Male
  Weight: 90 kg

DRUGS (3)
  1. ABIRATERONE ACETATE. [Suspect]
     Active Substance: ABIRATERONE ACETATE
     Dosage: 1000 MILLIGRAM, PER DAY, 500 MG, 2 TIMES EVERY 1 DAY
     Route: 048
     Dates: start: 2021
  2. PREDNISOLONE. [Suspect]
     Active Substance: PREDNISOLONE
     Indication: PROSTATE CANCER METASTATIC
     Dosage: 20 MILLIGRAM, PER DAY (10 MG, 2 TIMES EVERY 1 DAY)
     Route: 048
     Dates: start: 20210114
  3. ABIRATERONE ACETATE. [Suspect]
     Active Substance: ABIRATERONE ACETATE
     Indication: PROSTATE CANCER METASTATIC
     Dosage: 1000 MILLIGRAM, PER DAY
     Route: 048
     Dates: start: 20210114

REACTIONS (2)
  - Heart rate irregular [Not Recovered/Not Resolved]
  - Prostate cancer metastatic [Not Recovered/Not Resolved]

NARRATIVE: CASE EVENT DATE: 202102
